FAERS Safety Report 6768885-1 (Version None)
Quarter: 2010Q2

REPORT INFORMATION
  Report Type: 
  Country: None (occurrence: None)
  Receive Date: 20100611
  Receipt Date: 20100607
  Transmission Date: 20101027
  Serious: Yes (Hospitalization)
  Sender: FDA-Public Use
  Company Number: GER/GER/10/0013322

PATIENT
  Age: 54 Year
  Sex: Male
  Weight: 83 kg

DRUGS (10)
  1. METFORMIN HCL [Suspect]
     Indication: TYPE 2 DIABETES MELLITUS
     Dosage: 500 MG, 1 IN 1 D, ORAL
     Route: 048
     Dates: start: 20080701, end: 20100422
  2. ALLOPURINOL [Suspect]
     Indication: HYPERURICAEMIA
     Dosage: 150 MG, 1 IN 1 D, ORAL
     Route: 048
     Dates: end: 20100423
  3. CRESTOR [Suspect]
     Indication: HYPERLIPIDAEMIA
     Dosage: 10 MG, 1 IN 1 D, ORAL
     Route: 048
     Dates: start: 20091008, end: 20100423
  4. JANUMET [Suspect]
     Indication: TYPE 2 DIABETES MELLITUS
     Dosage: 1050 MG, 2 IN 1 D, ORAL
     Route: 048
     Dates: start: 20090101, end: 20100423
  5. ACTOS [Suspect]
     Indication: TYPE 2 DIABETES MELLITUS
     Dosage: 15 MG, 1 IN 1 D, ORAL
     Route: 048
     Dates: start: 20090713, end: 20100423
  6. OMACOR [Suspect]
     Indication: HYPERTRIGLYCERIDAEMIA
     Dosage: 1000 MG, 4 IN 1 D, ORAL
     Route: 048
     Dates: start: 20080701, end: 20100423
  7. RASILEZ (ALISKIREN) [Suspect]
     Indication: HYPERTENSION
     Dosage: 150 MG, 1 IN 1 D, ORAL
     Route: 048
     Dates: start: 20070101, end: 20100423
  8. SIMVAHEXAL 40 MG FILMTABLETTEN (SIMVASTATIN) [Concomitant]
  9. RAMIPRIL [Concomitant]
  10. METOHEXAL SUCC 95 MG (METOPROLOL SUCCINATE) [Concomitant]

REACTIONS (3)
  - AUTOIMMUNE HEPATITIS [None]
  - HEPATITIS ALCOHOLIC [None]
  - LIVER INJURY [None]
